FAERS Safety Report 4700015-X (Version None)
Quarter: 2005Q2

REPORT INFORMATION
  Report Type: 
  Country: None (occurrence: None)
  Receive Date: 20050623
  Receipt Date: 20040809
  Transmission Date: 20051028
  Serious: Yes (Other)
  Sender: FDA-Public Use
  Company Number: 377314

PATIENT
  Age: 51 Year
  Sex: Female
  Weight: 90.7 kg

DRUGS (4)
  1. XENICAL [Suspect]
     Indication: OBESITY
     Dosage: ORAL
     Route: 048
  2. PROZAC [Concomitant]
  3. THYROXINE (LEVOTHYROXINE) [Concomitant]
  4. IMIPRAMINE [Concomitant]

REACTIONS (3)
  - DIARRHOEA [None]
  - STEATORRHOEA [None]
  - WEIGHT INCREASED [None]
